FAERS Safety Report 9951240 (Version 1)
Quarter: 2014Q1

REPORT INFORMATION
  Report Type: Report from Study
  Country: US (occurrence: US)
  Receive Date: 20140304
  Receipt Date: 20140304
  Transmission Date: 20141002
  Serious: No
  Sender: FDA-Public Use
  Company Number: US-ABBVIE-13P-163-1073584-00

PATIENT
  Sex: Female
  Weight: 77 kg

DRUGS (8)
  1. HUMIRA [Suspect]
     Indication: RHEUMATOID ARTHRITIS
     Dates: start: 20130307
  2. CELEXA [Concomitant]
     Indication: PRODUCT USED FOR UNKNOWN INDICATION
  3. PRIM ROSE OIL [Concomitant]
     Indication: PRODUCT USED FOR UNKNOWN INDICATION
  4. FISH OIL [Concomitant]
     Indication: PRODUCT USED FOR UNKNOWN INDICATION
  5. FLAX SEED OIL [Concomitant]
     Indication: PRODUCT USED FOR UNKNOWN INDICATION
  6. MVI [Concomitant]
     Indication: PRODUCT USED FOR UNKNOWN INDICATION
  7. CAL WITH D [Concomitant]
     Indication: PRODUCT USED FOR UNKNOWN INDICATION
  8. MAXALTO [Concomitant]
     Indication: PRODUCT USED FOR UNKNOWN INDICATION

REACTIONS (1)
  - Injection site rash [Unknown]
